FAERS Safety Report 23397073 (Version 1)
Quarter: 2024Q1

REPORT INFORMATION
  Report Type: Spontaneous
  Country: US (occurrence: US)
  Receive Date: 20240112
  Receipt Date: 20240112
  Transmission Date: 20240410
  Serious: Yes (Death, Hospitalization, Other)
  Sender: FDA-Public Use
  Company Number: US-PFIZER INC-202400007484

PATIENT
  Age: 49 Year
  Sex: Female

DRUGS (8)
  1. LEVOTHYROXINE SODIUM [Suspect]
     Active Substance: LEVOTHYROXINE SODIUM
     Dosage: UNK (INGESTION)
     Route: 048
  2. AMLODIPINE [Suspect]
     Active Substance: AMLODIPINE BESYLATE
     Dosage: UNK (INGESTION)
     Route: 048
  3. METOPROLOL [Suspect]
     Active Substance: METOPROLOL
     Dosage: UNK (INGESTION)
     Route: 048
  4. CLONAZEPAM [Suspect]
     Active Substance: CLONAZEPAM
     Dosage: UNK (INGESTION)
     Route: 048
  5. DIAZEPAM [Suspect]
     Active Substance: DIAZEPAM
     Dosage: UNK (INGESTION)
     Route: 048
  6. BUTALBITAL, ACETAMINOPHEN, AND CAFFEINE [Suspect]
     Active Substance: ACETAMINOPHEN\BUTALBITAL\CAFFEINE
     Dosage: UNK (INGESTION)
     Route: 048
  7. POTASSIUM [Suspect]
     Active Substance: POTASSIUM
     Dosage: UNK (INGESTION)
     Route: 048
  8. GABAPENTIN [Suspect]
     Active Substance: GABAPENTIN
     Dosage: UNK (INGESTION)
     Route: 048

REACTIONS (1)
  - Completed suicide [Fatal]

NARRATIVE: CASE EVENT DATE: 20220101
